FAERS Safety Report 5868579-0 (Version None)
Quarter: 2008Q3

REPORT INFORMATION
  Report Type: 
  Country: None (occurrence: None)
  Receive Date: 20080902
  Receipt Date: 20080902
  Transmission Date: 20090109
  Serious: Yes (Hospitalization)
  Sender: FDA-Public Use
  Company Number: None

PATIENT
  Sex: Female
  Weight: 75 kg

DRUGS (2)
  1. CARBOPLATIN [Suspect]
     Dosage: 455 MG
     Dates: end: 20080609
  2. TAXOL [Suspect]
     Dosage: 310 MG
     Dates: end: 20080609

REACTIONS (13)
  - ANAEMIA [None]
  - ASCITES [None]
  - BACTERIAL INFECTION [None]
  - DEEP VEIN THROMBOSIS [None]
  - DEHYDRATION [None]
  - MELAENA [None]
  - NEUTROPENIA [None]
  - ORAL CANDIDIASIS [None]
  - PITTING OEDEMA [None]
  - PLEURAL EFFUSION [None]
  - PRODUCTIVE COUGH [None]
  - SPUTUM CULTURE POSITIVE [None]
  - WHITE BLOOD CELL COUNT DECREASED [None]
